FAERS Safety Report 9245258 (Version 1)
Quarter: 2013Q1

REPORT INFORMATION
  Report Type: Spontaneous
  Country: US (occurrence: None)
  Receive Date: 20121130
  Receipt Date: 20121130
  Transmission Date: 20140127
  Serious: Yes (Other)
  Sender: FDA-Public Use
  Company Number: 338319

PATIENT
  Age: 16 Year
  Sex: Female
  Weight: 63.5 kg

DRUGS (2)
  1. NOVOLOG [Suspect]
     Indication: TYPE 1 DIABETES MELLITUS
     Dosage: SLIDING SCALE, SUBCUTANEOUS
     Route: 058
     Dates: start: 2005
  2. LANTUS (INSULIN GLARGINE) [Concomitant]

REACTIONS (2)
  - Blood glucose increased [None]
  - Ketonuria [None]
